FAERS Safety Report 26116785 (Version 1)
Quarter: 2025Q4

REPORT INFORMATION
  Report Type: Report from Study
  Country: PH (occurrence: PH)
  Receive Date: 20251203
  Receipt Date: 20251203
  Transmission Date: 20260118
  Serious: Yes (Death)
  Sender: OTSUKA
  Company Number: PH-MMM-Otsuka-92UBFEJ8

PATIENT

DRUGS (2)
  1. TOLVAPTAN [Suspect]
     Active Substance: TOLVAPTAN
     Indication: Dyspnoea
     Dosage: 0.5 DF, QD (15 MG HALF TABLET DAILY IN THE MORNING)
     Dates: end: 20251103
  2. TOLVAPTAN [Suspect]
     Active Substance: TOLVAPTAN
     Indication: Asthenia

REACTIONS (4)
  - Myocardial infarction [Fatal]
  - Wrong technique in product usage process [Unknown]
  - Prescribed underdose [Unknown]
  - Product prescribing issue [Unknown]

NARRATIVE: CASE EVENT DATE: 20251103
